FAERS Safety Report 8557430-6 (Version None)
Quarter: 2012Q3

REPORT INFORMATION
  Report Type: 
  Country: None (occurrence: None)
  Receive Date: 20120801
  Receipt Date: 20120723
  Transmission Date: 20120928
  Serious: Yes (Hospitalization, Other)
  Sender: FDA-Public Use
  Company Number: FR-ELI_LILLY_AND_COMPANY-FR201207006566

PATIENT
  Sex: Male

DRUGS (8)
  1. ASPEGIC 1000 [Concomitant]
     Dosage: 250 MG, QD
  2. LANTUS [Concomitant]
     Indication: TYPE 2 DIABETES MELLITUS
     Dosage: UNK UNK, QD
     Route: 058
  3. CORVASAL [Concomitant]
     Dosage: 2 MG, TID
  4. PHENOXYMETHYL PENICILLIN [Concomitant]
     Dosage: 2 DF, BID
  5. IRBESARTAN AND HYDROCHLOROTHIAZIDE [Concomitant]
     Dosage: UNK UNK, QD
  6. NOVORAPID [Concomitant]
     Indication: TYPE 2 DIABETES MELLITUS
     Dosage: UNK UNK, QD
     Route: 058
  7. GEMZAR [Suspect]
     Indication: ADENOCARCINOMA PANCREAS
     Dosage: UNK
     Route: 042
     Dates: start: 20110608, end: 20111101
  8. SECTRAL [Concomitant]
     Dosage: 200 MG, QD

REACTIONS (7)
  - HYPERTENSION [None]
  - PYREXIA [None]
  - GENERAL PHYSICAL HEALTH DETERIORATION [None]
  - KIDNEY FIBROSIS [None]
  - RENAL FAILURE ACUTE [None]
  - FLUID OVERLOAD [None]
  - DYSPNOEA [None]
